FAERS Safety Report 15716394 (Version 1)
Quarter: 2018Q4

REPORT INFORMATION
  Report Type: Report from Study
  Country: ES (occurrence: ES)
  Receive Date: 20181213
  Receipt Date: 20181213
  Transmission Date: 20190205
  Serious: Yes (Hospitalization)
  Sender: FDA-Public Use
  Company Number: ES-TEVA-2018-ES-985295

PATIENT
  Age: 78 Year
  Sex: Female

DRUGS (2)
  1. LEVOFLOXACINO (2791A) [Suspect]
     Active Substance: LEVOFLOXACIN
     Indication: RESPIRATORY TRACT INFECTION
     Dosage: 500 MILLIGRAM DAILY; 500 MG, 1 VEZ AL D?A
     Route: 042
     Dates: start: 20120203, end: 20120207
  2. CLINDAMICINA (616A) [Suspect]
     Active Substance: CLINDAMYCIN
     Indication: RESPIRATORY TRACT INFECTION
     Dosage: 300 MG, 3 VECES AL D?A
     Route: 042
     Dates: start: 20120203, end: 20120205

REACTIONS (1)
  - Acute generalised exanthematous pustulosis [Recovered/Resolved]

NARRATIVE: CASE EVENT DATE: 20120204
